FAERS Safety Report 12299908 (Version 1)
Quarter: 2016Q2

REPORT INFORMATION
  Report Type: Spontaneous
  Country: CH (occurrence: CH)
  Receive Date: 20160425
  Receipt Date: 20160425
  Transmission Date: 20160815
  Serious: Yes (Other)
  Sender: FDA-Public Use
  Company Number: CH-TEVA-654590ISR

PATIENT
  Sex: Male

DRUGS (1)
  1. TAMSULOSIN MEPHA RETARD DEPOCAPS [Suspect]
     Active Substance: TAMSULOSIN
     Route: 065

REACTIONS (1)
  - Oesophageal carcinoma [Not Recovered/Not Resolved]
